FAERS Safety Report 6999981-1 (Version None)
Quarter: 2010Q3

REPORT INFORMATION
  Report Type: 
  Country: None (occurrence: None)
  Receive Date: 20100920
  Receipt Date: 20100527
  Transmission Date: 20110219
  Serious: No
  Sender: FDA-Public Use
  Company Number: US-ASTRAZENECA-2010SE35169

PATIENT
  Age: 14209 Day
  Sex: Female
  Weight: 67.1 kg

DRUGS (8)
  1. SEROQUEL [Suspect]
     Route: 048
     Dates: start: 20020822
  2. BIAXIN XL [Concomitant]
     Dates: start: 20020608
  3. PAXIL CR [Concomitant]
     Dosage: 20 MG TO 25 MG
     Dates: start: 20020808
  4. NALTREXONE [Concomitant]
     Dates: start: 20020808
  5. DEPAKOTE [Concomitant]
     Dosage: 500 MG BID AND 100 MG HS
     Dates: start: 20020808
  6. CEPHALEXIN [Concomitant]
     Dates: start: 20031027
  7. ACETAMINOPHEN/ COD [Concomitant]
     Dates: start: 20031027
  8. KLONOPIN [Concomitant]
     Dates: start: 20020206

REACTIONS (1)
  - BREAST MASS [None]
